FAERS Safety Report 20130638 (Version 1)
Quarter: 2021Q4

REPORT INFORMATION
  Report Type: Spontaneous
  Country: CN (occurrence: CN)
  Receive Date: 20211130
  Receipt Date: 20211130
  Transmission Date: 20220303
  Serious: Yes (Other)
  Sender: FDA-Public Use
  Company Number: CN-PFIZER INC-202101596518

PATIENT
  Age: 42 Year
  Sex: Female
  Weight: 65 kg

DRUGS (3)
  1. AROMASIN [Suspect]
     Active Substance: EXEMESTANE
     Indication: Breast cancer
     Dosage: 25 MG, 1X/DAY
     Route: 048
     Dates: start: 20210916, end: 20211015
  2. PIRFENIDONE [Suspect]
     Active Substance: PIRFENIDONE
     Indication: Breast cancer
     Dosage: 0.2 G, 3X/DAY
     Route: 048
     Dates: start: 20210917, end: 20211011
  3. PIRFENIDONE [Suspect]
     Active Substance: PIRFENIDONE
     Indication: Radiation pneumonitis

REACTIONS (1)
  - Transaminases increased [Recovering/Resolving]

NARRATIVE: CASE EVENT DATE: 20211009
